FAERS Safety Report 24148656 (Version 1)
Quarter: 2024Q3

REPORT INFORMATION
  Report Type: Spontaneous
  Country: US (occurrence: US)
  Receive Date: 20240729
  Receipt Date: 20240729
  Transmission Date: 20241016
  Serious: No
  Sender: GLAXOSMITHKLINE
  Company Number: US-GSK-US2024091114

PATIENT
  Age: 70 Year
  Sex: Female

DRUGS (1)
  1. BENLYSTA [Suspect]
     Active Substance: BELIMUMAB
     Indication: Systemic lupus erythematosus
     Dosage: 200 MG, WE
     Dates: start: 202305

REACTIONS (2)
  - Anaemia [Not Recovered/Not Resolved]
  - Blood iron decreased [Not Recovered/Not Resolved]

NARRATIVE: CASE EVENT DATE: 20240101
